FAERS Safety Report 5746674-4 (Version None)
Quarter: 2008Q2

REPORT INFORMATION
  Report Type: 
  Country: None (occurrence: None)
  Receive Date: 20080522
  Receipt Date: 20080515
  Transmission Date: 20081010
  Serious: Yes (Hospitalization)
  Sender: FDA-Public Use
  Company Number: TN-AVENTIS-200814589GDDC

PATIENT
  Age: 63 Year
  Sex: Female

DRUGS (4)
  1. LANTUS [Suspect]
     Indication: TYPE 2 DIABETES MELLITUS
     Route: 058
     Dates: start: 20080512
  2. FOLIC ACID [Concomitant]
     Route: 048
     Dates: start: 20050101
  3. OXYBUTYNINE [Concomitant]
     Indication: INCONTINENCE
     Route: 048
     Dates: start: 20080510
  4. PRAVASTATIN [Concomitant]
     Dates: start: 20080510

REACTIONS (3)
  - DYSPNOEA [None]
  - OEDEMA PERIPHERAL [None]
  - PULMONARY OEDEMA [None]
